FAERS Safety Report 6625670-9 (Version None)
Quarter: 2010Q1

REPORT INFORMATION
  Report Type: 
  Country: None (occurrence: None)
  Receive Date: 20100310
  Receipt Date: 20100304
  Transmission Date: 20100710
  Serious: Yes (Death, Hospitalization)
  Sender: FDA-Public Use
  Company Number: FR-ELI_LILLY_AND_COMPANY-FR201003001237

PATIENT
  Sex: Male

DRUGS (15)
  1. ALIMTA [Suspect]
     Dosage: 850 MG, UNK
     Route: 042
  2. ALIMTA [Suspect]
     Dosage: 825 MG, UNK
     Route: 042
  3. CARBOPLATIN [Concomitant]
     Dosage: 670 MG, UNK
     Route: 042
     Dates: end: 20091214
  4. METFORMIN HYDROCHLORIDE [Concomitant]
     Dosage: 1000 MG, 2/D
  5. PRETERAX [Concomitant]
     Dosage: 1 D/F, DAILY (1/D)
  6. NOVONORM [Concomitant]
     Dosage: 2 MG, DAILY (1/D)
  7. ASPEGIC 1000 [Concomitant]
     Dosage: 100 MG, DAILY (1/D)
  8. TAHOR [Concomitant]
     Dosage: 80 MG, DAILY (1/D)
  9. SECTRAL [Concomitant]
     Dosage: 200 MG, 2/D
  10. IKOREL [Concomitant]
     Dosage: 10 MG, 2/D
  11. VASTAREL [Concomitant]
     Dosage: 35 MG, 2/D
  12. NOVOMIX                            /01475801/ [Concomitant]
     Dosage: 60 U, DAILY (1/D)
  13. SOLUPRED [Concomitant]
     Dosage: 60 MG, DAILY (1/D)
  14. LARGACTIL [Concomitant]
     Dosage: 25 MG, UNK
     Route: 042
     Dates: start: 20091012, end: 20091214
  15. TRANXENE [Concomitant]
     Dosage: UNK, UNKNOWN
     Route: 042
     Dates: start: 20091012, end: 20091214

REACTIONS (2)
  - DEATH [None]
  - MYOCARDIAL INFARCTION [None]
